FAERS Safety Report 16232543 (Version 23)
Quarter: 2020Q4

REPORT INFORMATION
  Report Type: Report from Study
  Country: CH (occurrence: CH)
  Receive Date: 20190424
  Receipt Date: 20201110
  Transmission Date: 20210113
  Serious: Yes (Other)
  Sender: FDA-Public Use
  Company Number: CH-B.I. PHARMACEUTICALS,INC./RIDGEFIELD-2019-BI-002252

PATIENT
  Age: 78 Year
  Sex: Male
  Weight: 65 kg

DRUGS (25)
  1. OFEV [Suspect]
     Active Substance: NINTEDANIB
     Indication: IDIOPATHIC PULMONARY FIBROSIS
     Route: 048
     Dates: start: 20190113, end: 20190214
  2. OXYGEN. [Concomitant]
     Active Substance: OXYGEN
  3. SPIRICORT [Concomitant]
     Active Substance: PREDNISOLONE
     Dates: start: 20190301
  4. CALCIMAGON D3 [Concomitant]
     Active Substance: CALCIUM\CHOLECALCIFEROL
     Indication: OSTEOPENIA
     Dosage: DOSE: 800/1000
  5. PANTOZOL [Concomitant]
     Active Substance: PANTOPRAZOLE SODIUM
     Indication: PRODUCT USED FOR UNKNOWN INDICATION
  6. DYMISTA [Concomitant]
     Active Substance: AZELASTINE HYDROCHLORIDE\FLUTICASONE PROPIONATE
     Indication: PRODUCT USED FOR UNKNOWN INDICATION
     Dosage: NASAL SPRAY
  7. OXYGEN. [Concomitant]
     Active Substance: OXYGEN
     Indication: PRODUCT USED FOR UNKNOWN INDICATION
  8. OFEV [Suspect]
     Active Substance: NINTEDANIB
     Route: 048
     Dates: start: 20190411
  9. ATROVENT [Concomitant]
     Active Substance: IPRATROPIUM BROMIDE
     Indication: PRODUCT USED FOR UNKNOWN INDICATION
     Dosage: DOSE:2ML/250MI?PREPARED AMPOULES
  10. ACTONEL [Concomitant]
     Active Substance: RISEDRONATE SODIUM
     Indication: DRUG THERAPY
     Dates: start: 202002
  11. SPIRICORT [Concomitant]
     Active Substance: PREDNISOLONE
     Dates: end: 201901
  12. DYMISTA [Concomitant]
     Active Substance: AZELASTINE HYDROCHLORIDE\FLUTICASONE PROPIONATE
     Dosage: NASAL SPRAY FREQUENCY:
  13. SPIRICORT [Concomitant]
     Active Substance: PREDNISOLONE
     Dates: end: 20190228
  14. SPIRICORT [Concomitant]
     Active Substance: PREDNISOLONE
     Dates: start: 20200131
  15. PANTOZOL [Concomitant]
     Active Substance: PANTOPRAZOLE SODIUM
  16. SAGE [SALVIA OFFICINALIS] [Concomitant]
     Indication: COUGH
     Dosage: TEA
  17. OFEV [Suspect]
     Active Substance: NINTEDANIB
     Dosage: 100 MG AM +150 MG EVENING
     Route: 048
     Dates: start: 20191106
  18. OFEV [Suspect]
     Active Substance: NINTEDANIB
     Route: 048
     Dates: start: 20191111
  19. OFEV [Suspect]
     Active Substance: NINTEDANIB
     Dosage: 100/150 MG  1-0-0/0-0-1
     Route: 048
     Dates: start: 20200907
  20. SPIRICORT [Concomitant]
     Active Substance: PREDNISOLONE
     Indication: COLLAGEN DISORDER
     Dates: start: 201601
  21. SPIRICORT [Concomitant]
     Active Substance: PREDNISOLONE
     Dates: start: 20200507
  22. FRESUBIN [Concomitant]
     Active Substance: AMINO ACIDS\DEXTROSE\ELECTROLYTES NOS\SOYBEAN OIL\VITAMINS
     Indication: PRODUCT USED FOR UNKNOWN INDICATION
  23. OFEV [Suspect]
     Active Substance: NINTEDANIB
     Route: 048
     Dates: start: 20190215, end: 20190315
  24. SPIRICORT [Concomitant]
     Active Substance: PREDNISOLONE
     Dates: start: 201901
  25. SPIRICORT [Concomitant]
     Active Substance: PREDNISOLONE

REACTIONS (18)
  - Increased appetite [Recovered/Resolved]
  - Decreased appetite [Recovered/Resolved]
  - Cough [Not Recovered/Not Resolved]
  - Respiratory distress [Recovered/Resolved]
  - Malaise [Unknown]
  - Dyspnoea exertional [Recovered/Resolved]
  - Dyspnoea [Not Recovered/Not Resolved]
  - Intervertebral disc protrusion [Not Recovered/Not Resolved]
  - Frequent bowel movements [Recovered/Resolved]
  - Weight decreased [Recovered/Resolved]
  - Weight increased [Unknown]
  - Increased appetite [Not Recovered/Not Resolved]
  - Productive cough [Recovered/Resolved]
  - Diarrhoea [Recovered/Resolved]
  - Abdominal pain upper [Recovered/Resolved]
  - Back pain [Not Recovered/Not Resolved]
  - Weight decreased [Recovered/Resolved]
  - Fatigue [Not Recovered/Not Resolved]

NARRATIVE: CASE EVENT DATE: 20190115
